FAERS Safety Report 8624061-9 (Version None)
Quarter: 2012Q3

REPORT INFORMATION
  Report Type: 
  Country: None (occurrence: None)
  Receive Date: 20120824
  Receipt Date: 20120824
  Transmission Date: 20120928
  Serious: No
  Sender: FDA-Public Use
  Company Number: None

PATIENT
  Sex: Female

DRUGS (1)
  1. SIMPONI [Suspect]
     Dosage: 500MG QMN SUBQ
     Route: 058
     Dates: start: 20120424, end: 20120730

REACTIONS (3)
  - NAUSEA [None]
  - HEADACHE [None]
  - FATIGUE [None]
